FAERS Safety Report 7496994-0 (Version None)
Quarter: 2011Q2

REPORT INFORMATION
  Report Type: 
  Country: None (occurrence: None)
  Receive Date: 20110523
  Receipt Date: 20110510
  Transmission Date: 20111010
  Serious: Yes (Other)
  Sender: FDA-Public Use
  Company Number: PT-JNJFOC-20110507344

PATIENT
  Age: 31 Year
  Sex: Female
  Weight: 60 kg

DRUGS (2)
  1. SINUTAB II [Suspect]
     Indication: NASAL CONGESTION
     Dosage: FOUR TABLETS PER DAY
     Route: 048
     Dates: start: 20110505, end: 20110505
  2. CONTRACEPTIVE [Concomitant]
     Indication: CONTRACEPTION
     Route: 048

REACTIONS (1)
  - URTICARIA [None]
